FAERS Safety Report 4304581-8 (Version None)
Quarter: 2004Q1

REPORT INFORMATION
  Report Type: 
  Country: None (occurrence: None)
  Receive Date: 20040224
  Receipt Date: 20040209
  Transmission Date: 20041129
  Serious: Yes (Other)
  Sender: FDA-Public Use
  Company Number: S04-GER-00592-01

PATIENT
  Age: 62 Year
  Sex: Female

DRUGS (2)
  1. CIPRALEX (ESCITALOPRAM) [Suspect]
     Dosage: 10 MG QD PO
     Route: 048
  2. CIPRALEX(ESCITALOPRAM) [Suspect]
     Dosage: 20 MG QD PO
     Route: 048

REACTIONS (1)
  - SEROTONIN SYNDROME [None]
